FAERS Safety Report 9674147 (Version 1)
Quarter: 2013Q4

REPORT INFORMATION
  Report Type: Spontaneous
  Country: US (occurrence: US)
  Receive Date: 20131106
  Receipt Date: 20131106
  Transmission Date: 20140711
  Serious: No
  Sender: FDA-Public Use
  Company Number: US-AMGEN-USASP2013075357

PATIENT
  Age: 47 Year
  Sex: Female
  Weight: 98.41 kg

DRUGS (9)
  1. ENBREL [Suspect]
     Indication: PRODUCT USED FOR UNKNOWN INDICATION
     Dosage: 50 MG, QWK
     Route: 058
  2. VICODIN [Concomitant]
     Dosage: 5-500 MG, UNK
  3. SERTRALINE [Concomitant]
     Dosage: 25 MG, UNK
  4. IBUPROFEN [Concomitant]
     Dosage: 800 MG, UNK
  5. PRAVASTATIN [Concomitant]
     Dosage: 20 MG, UNK
  6. PROAIR HFA [Concomitant]
     Dosage: UNK
  7. LORAZEPAM [Concomitant]
     Dosage: 0.5 MG, UNK
  8. PREVACID [Concomitant]
     Dosage: 15 MG, STB
  9. FOLIC ACID [Concomitant]
     Dosage: 20 MG, UNK

REACTIONS (1)
  - Injection site urticaria [Unknown]
